FAERS Safety Report 17483775 (Version 1)
Quarter: 2020Q1

REPORT INFORMATION
  Report Type: Spontaneous
  Country: US (occurrence: US)
  Receive Date: 20200219
  Receipt Date: 20200219
  Transmission Date: 20200409
  Serious: Yes (Hospitalization)
  Sender: FDA-Public Use
  Company Number: None

PATIENT

DRUGS (2)
  1. CAPECITABINE  500MG [Suspect]
     Active Substance: CAPECITABINE
     Indication: BILE DUCT CANCER
     Route: 048
     Dates: start: 201910
  2. CAPECITABINE 150MG [Suspect]
     Active Substance: CAPECITABINE
     Indication: BILE DUCT CANCER
     Route: 048
     Dates: start: 201910

REACTIONS (2)
  - Dehydration [None]
  - Loss of consciousness [None]
